FAERS Safety Report 18789517 (Version 2)
Quarter: 2021Q1

REPORT INFORMATION
  Report Type: Report from Study
  Country: US (occurrence: US)
  Receive Date: 20210126
  Receipt Date: 20210209
  Transmission Date: 20210419
  Serious: Yes (Life-Threatening)
  Sender: FDA-Public Use
  Company Number: US-AMGEN-USACT2021010591

PATIENT
  Age: 47 Year
  Sex: Male
  Weight: 65.4 kg

DRUGS (1)
  1. BLINATUMOMAB [Suspect]
     Active Substance: BLINATUMOMAB
     Indication: B PRECURSOR TYPE ACUTE LEUKAEMIA
     Dosage: 588 MICROGRAM
     Route: 065
     Dates: start: 20190312, end: 20190402

REACTIONS (1)
  - Alanine aminotransferase increased [Recovered/Resolved]

NARRATIVE: CASE EVENT DATE: 20190402
